FAERS Safety Report 12893334 (Version 1)
Quarter: 2016Q4

REPORT INFORMATION
  Report Type: Spontaneous
  Country: US (occurrence: US)
  Receive Date: 20161027
  Receipt Date: 20161027
  Transmission Date: 20170207
  Serious: No
  Sender: FDA-Public Use
  Company Number: None

PATIENT
  Sex: Male

DRUGS (1)
  1. BISOPROLOL 10 MG UNICHEM [Suspect]
     Active Substance: BISOPROLOL

REACTIONS (3)
  - Drug ineffective [None]
  - Blood pressure increased [None]
  - Blood pressure inadequately controlled [None]
